FAERS Safety Report 9232255 (Version 1)
Quarter: 2013Q2

REPORT INFORMATION
  Report Type: Spontaneous
  Country: CA (occurrence: CA)
  Receive Date: 20130415
  Receipt Date: 20130415
  Transmission Date: 20140414
  Serious: Yes (Death)
  Sender: FDA-Public Use
  Company Number: CA-009507513-1304CAN005941

PATIENT
  Sex: Female

DRUGS (2)
  1. VICTRELIS TRIPLE [Suspect]
     Dosage: UNK
     Dates: start: 20121107
  2. VICTRELIS TRIPLE [Suspect]
     Dosage: UNK
     Dates: start: 20130225

REACTIONS (1)
  - Death [Fatal]
